FAERS Safety Report 14777541 (Version 2)
Quarter: 2018Q2

REPORT INFORMATION
  Report Type: Spontaneous
  Country: US (occurrence: US)
  Receive Date: 20180419
  Receipt Date: 20180504
  Transmission Date: 20180711
  Serious: No
  Sender: FDA-Public Use
  Company Number: US-PFIZER INC-2018160431

PATIENT
  Age: 75 Year
  Sex: Female
  Weight: 70 kg

DRUGS (1)
  1. TOVIAZ [Suspect]
     Active Substance: FESOTERODINE FUMARATE
     Indication: MICTURITION URGENCY
     Dosage: UNK, 1X/DAY

REACTIONS (7)
  - Dizziness [Unknown]
  - Dry mouth [Unknown]
  - Drug ineffective [Unknown]
  - Vision blurred [Unknown]
  - Headache [Unknown]
  - Dry eye [Unknown]
  - Dehydration [Unknown]
